FAERS Safety Report 15211993 (Version 1)
Quarter: 2018Q3

REPORT INFORMATION
  Report Type: Spontaneous
  Country: DK (occurrence: DK)
  Receive Date: 20180730
  Receipt Date: 20180730
  Transmission Date: 20181010
  Serious: Yes (Other)
  Sender: FDA-Public Use
  Company Number: DK-CONCORDIA PHARMACEUTICALS INC.-E2B_00014768

PATIENT
  Age: 69 Year
  Sex: Male

DRUGS (5)
  1. NOZINAN [Concomitant]
     Active Substance: LEVOMEPROMAZINE
     Indication: SLEEP DISORDER
     Dates: start: 2012
  2. CONTALGIN [Concomitant]
     Active Substance: MORPHINE SULFATE
     Indication: PAIN
     Dates: start: 2013
  3. CALCIUM OG D?VITAMIN [Concomitant]
     Indication: OSTEOPOROSIS
     Dates: start: 2012
  4. PREDNISOLONE. [Suspect]
     Active Substance: PREDNISOLONE
     Indication: POLYMYALGIA RHEUMATICA
     Dosage: STYRKE: 5 MG.?UDTRAPPET OG STARTE IGEN FLERE GANGE SIDEN 2012.
     Route: 048
     Dates: start: 20121106
  5. ALENDRONAT [Concomitant]
     Active Substance: ALENDRONATE SODIUM
     Indication: OSTEOPOROSIS
     Dosage: STYRKE: 70 MG.
     Route: 048
     Dates: start: 2012

REACTIONS (3)
  - Visual impairment [Unknown]
  - Tooth disorder [Not Recovered/Not Resolved]
  - Dental caries [Not Recovered/Not Resolved]

NARRATIVE: CASE EVENT DATE: 2013
